FAERS Safety Report 7054460-0 (Version None)
Quarter: 2010Q4

REPORT INFORMATION
  Report Type: 
  Country: None (occurrence: None)
  Receive Date: 20101015
  Receipt Date: 20101006
  Transmission Date: 20110411
  Serious: Yes (Hospitalization)
  Sender: FDA-Public Use
  Company Number: 2010MA003371

PATIENT
  Age: 45 Year
  Sex: Male

DRUGS (4)
  1. NAPROXEN [Suspect]
  2. AMLODIPINE BESYLATE [Suspect]
     Dosage: 20 MG;X1
  3. COLCHICINIUM (NO PREF. NAME) [Suspect]
     Dosage: 5 MG;X1
  4. ALCOHOL (ETHANOL) [Suspect]
     Dosage: 500 ML;X1

REACTIONS (13)
  - ABDOMINAL PAIN [None]
  - ANXIETY [None]
  - BLOOD LACTATE DEHYDROGENASE INCREASED [None]
  - CHROMATURIA [None]
  - CONSTIPATION [None]
  - DEPRESSED MOOD [None]
  - FEAR [None]
  - INSOMNIA [None]
  - LEUKOCYTOSIS [None]
  - PHOTOPHOBIA [None]
  - PORPHYRIA ACUTE [None]
  - PSYCHOTIC DISORDER [None]
  - SUICIDE ATTEMPT [None]
